FAERS Safety Report 24210041 (Version 1)
Quarter: 2024Q3

REPORT INFORMATION
  Report Type: Other
  Country: AU (occurrence: AU)
  Receive Date: 20240814
  Receipt Date: 20240814
  Transmission Date: 20241017
  Serious: Yes (Other)
  Sender: APTAPHARMA
  Company Number: AU-AptaPharma Inc.-2160407

PATIENT
  Sex: Male

DRUGS (1)
  1. SILDENAFIL FOR ORAL SUSPENSION [Suspect]
     Active Substance: SILDENAFIL CITRATE
     Indication: Product used for unknown indication
     Route: 065

REACTIONS (4)
  - Deafness neurosensory [Recovered/Resolved]
  - Drug abuse [Unknown]
  - Tinnitus [Recovered/Resolved]
  - Diplacusis [Recovered/Resolved]
